FAERS Safety Report 4807175-0 (Version None)
Quarter: 2005Q4

REPORT INFORMATION
  Report Type: 
  Country: None (occurrence: None)
  Receive Date: 20051024
  Receipt Date: 20050915
  Transmission Date: 20060501
  Serious: Yes (Other)
  Sender: FDA-Public Use
  Company Number: 2005PK01910

PATIENT
  Age: 550 Month
  Sex: Male
  Weight: 80 kg

DRUGS (5)
  1. NEXIUM [Suspect]
     Indication: REFLUX OESOPHAGITIS
     Route: 048
     Dates: start: 20050601
  2. NEXIUM [Suspect]
     Indication: BARRETT'S OESOPHAGUS
     Route: 048
     Dates: start: 20050601
  3. AGOPTON [Suspect]
     Indication: REFLUX OESOPHAGITIS
     Route: 048
     Dates: start: 20000201, end: 20050601
  4. AGOPTON [Suspect]
     Indication: BARRETT'S OESOPHAGUS
     Route: 048
     Dates: start: 20000201, end: 20050601
  5. METOPROLOL [Concomitant]
     Indication: LABILE HYPERTENSION
     Route: 048
     Dates: start: 20031201

REACTIONS (1)
  - GYNAECOMASTIA [None]
